FAERS Safety Report 7655898-0 (Version None)
Quarter: 2011Q3

REPORT INFORMATION
  Report Type: 
  Country: None (occurrence: None)
  Receive Date: 20110804
  Receipt Date: 20110804
  Transmission Date: 20111222
  Serious: Yes (Other)
  Sender: FDA-Public Use
  Company Number: None

PATIENT
  Age: 25 Year
  Sex: Female
  Weight: 46.7 kg

DRUGS (1)
  1. HEPARIN [Suspect]
     Indication: VENA CAVA THROMBOSIS
     Dosage: TITRATED DRIP
     Dates: start: 20110728, end: 20110802

REACTIONS (1)
  - CATHETER SITE HAEMORRHAGE [None]
